FAERS Safety Report 21301313 (Version 1)
Quarter: 2022Q3

REPORT INFORMATION
  Report Type: Spontaneous
  Country: CA (occurrence: CA)
  Receive Date: 20220907
  Receipt Date: 20220907
  Transmission Date: 20221026
  Serious: Yes (Other)
  Sender: FDA-Public Use
  Company Number: CA-SAMSUNG BIOEPIS-SB-2022-21890

PATIENT
  Age: 73 Year
  Sex: Female
  Weight: 70 kg

DRUGS (1)
  1. INFLIXIMAB [Suspect]
     Active Substance: INFLIXIMAB
     Indication: Crohn^s disease
     Route: 042

REACTIONS (10)
  - Abdominal distension [Not Recovered/Not Resolved]
  - Blood pressure fluctuation [Not Recovered/Not Resolved]
  - Blood pressure increased [Not Recovered/Not Resolved]
  - Constipation [Not Recovered/Not Resolved]
  - Cough [Not Recovered/Not Resolved]
  - Diabetes mellitus [Not Recovered/Not Resolved]
  - Fatigue [Not Recovered/Not Resolved]
  - Rhinorrhoea [Not Recovered/Not Resolved]
  - Intentional product use issue [Not Recovered/Not Resolved]
  - Off label use [Not Recovered/Not Resolved]
